FAERS Safety Report 15996893 (Version 2)
Quarter: 2019Q1

REPORT INFORMATION
  Report Type: Spontaneous
  Country: JP (occurrence: JP)
  Receive Date: 20190222
  Receipt Date: 20190307
  Transmission Date: 20190418
  Serious: Yes (Hospitalization, Other)
  Sender: FDA-Public Use
  Company Number: JP-SA-2019SA048173

PATIENT
  Age: 83 Year
  Sex: Male

DRUGS (7)
  1. NICORANDIL [Concomitant]
     Active Substance: NICORANDIL
     Dosage: 10 MG, QD
  2. BISOPROLOL [Concomitant]
     Active Substance: BISOPROLOL
     Dosage: 2.5 MG, QD
  3. BENIDIPINE [Concomitant]
     Active Substance: BENIDIPINE
     Dosage: 8 MG, QD
  4. IMIDAPRIL [Concomitant]
     Active Substance: IMIDAPRIL
     Dosage: 5 MG, QD
  5. WARFARIN SODIUM. [Interacting]
     Active Substance: WARFARIN SODIUM
     Dosage: 6 MG, QD
  6. RIFAMPICIN [Suspect]
     Active Substance: RIFAMPIN
     Indication: INFECTION
  7. UBIDECARENONE [Concomitant]
     Active Substance: UBIDECARENONE
     Dosage: 30 MG, QD

REACTIONS (11)
  - Pulmonary alveolar haemorrhage [Unknown]
  - Purpura [Unknown]
  - Rhonchi [Unknown]
  - Respiratory distress [Unknown]
  - Labelled drug-drug interaction medication error [Unknown]
  - Cough [Unknown]
  - Prothrombin time prolonged [Unknown]
  - Chest X-ray abnormal [Recovering/Resolving]
  - International normalised ratio increased [Recovering/Resolving]
  - Haematuria [Unknown]
  - Bronchial wall thickening [Recovering/Resolving]
